FAERS Safety Report 5375184-1 (Version None)
Quarter: 2007Q2

REPORT INFORMATION
  Report Type: 
  Country: None (occurrence: None)
  Receive Date: 20070629
  Receipt Date: 20061109
  Transmission Date: 20071010
  Serious: No
  Sender: FDA-Public Use
  Company Number: US-ASTRAZENECA-2006UW19386

PATIENT
  Age: 42 Year
  Sex: Female
  Weight: 86.2 kg

DRUGS (1)
  1. ZOLADEX [Suspect]
     Indication: UTERINE LEIOMYOMA
     Route: 058
     Dates: start: 20060901

REACTIONS (3)
  - DROOLING [None]
  - DYSGEUSIA [None]
  - SALIVARY HYPERSECRETION [None]
